FAERS Safety Report 23759669 (Version 1)
Quarter: 2024Q2

REPORT INFORMATION
  Report Type: Report from Study
  Country: US (occurrence: US)
  Receive Date: 20240419
  Receipt Date: 20240419
  Transmission Date: 20240716
  Serious: Yes (Hospitalization, Other)
  Sender: FDA-Public Use
  Company Number: US-JNJFOC-20240125032

PATIENT
  Age: 67 Year
  Sex: Female
  Weight: 70 kg

DRUGS (5)
  1. SELEXIPAG [Suspect]
     Active Substance: SELEXIPAG
     Indication: Pulmonary arterial hypertension
     Route: 048
  2. OPSUMIT [Concomitant]
     Active Substance: MACITENTAN
  3. SILDENAFIL CITRATE [Concomitant]
     Active Substance: SILDENAFIL CITRATE
  4. ELIQUIS [Concomitant]
     Active Substance: APIXABAN
  5. ASPIRIN [Concomitant]
     Active Substance: ASPIRIN

REACTIONS (6)
  - Intestinal obstruction [Unknown]
  - Gastrointestinal polyp haemorrhage [Unknown]
  - Rectal haemorrhage [Unknown]
  - Cardiac failure congestive [Unknown]
  - Pain [Unknown]
  - Fatigue [Unknown]

NARRATIVE: CASE EVENT DATE: 20240101
